FAERS Safety Report 5311132-8 (Version None)
Quarter: 2007Q2

REPORT INFORMATION
  Report Type: 
  Country: None (occurrence: None)
  Receive Date: 20070430
  Receipt Date: 20070416
  Transmission Date: 20071010
  Serious: Yes (Other)
  Sender: FDA-Public Use
  Company Number: JP-ROCHE-436360

PATIENT
  Age: 12 Year
  Sex: Male
  Weight: 35 kg

DRUGS (1)
  1. TAMIFLU [Suspect]
     Dosage: FORM:DRY SYRUP
     Route: 048
     Dates: start: 20060204, end: 20060204

REACTIONS (4)
  - ABNORMAL BEHAVIOUR [None]
  - DEPRESSED LEVEL OF CONSCIOUSNESS [None]
  - LOWER LIMB FRACTURE [None]
  - UPPER LIMB FRACTURE [None]
